FAERS Safety Report 10552799 (Version 1)
Quarter: 2014Q4

REPORT INFORMATION
  Report Type: Spontaneous
  Country: US (occurrence: US)
  Receive Date: 20141029
  Receipt Date: 20141029
  Transmission Date: 20150529
  Serious: No
  Sender: FDA-Public Use
  Company Number: US-MYLANLABS-2014S1003485

PATIENT
  Age: 21 Year
  Sex: Male
  Weight: 69.85 kg

DRUGS (1)
  1. RISPERIDONE TABLETS, USP [Suspect]
     Active Substance: RISPERIDONE
     Indication: SCHIZOPHRENIA
     Dosage: 1 MG,ONCE
     Route: 048
     Dates: start: 20140211, end: 20140211

REACTIONS (3)
  - Headache [Not Recovered/Not Resolved]
  - Sedation [Not Recovered/Not Resolved]
  - Fatigue [Not Recovered/Not Resolved]

NARRATIVE: CASE EVENT DATE: 20140211
